FAERS Safety Report 5708498-3 (Version None)
Quarter: 2008Q2

REPORT INFORMATION
  Report Type: 
  Country: None (occurrence: None)
  Receive Date: 20080417
  Receipt Date: 20080416
  Transmission Date: 20081010
  Serious: Yes (Other)
  Sender: FDA-Public Use
  Company Number: US-ASTRAZENECA-2008UW06101

PATIENT
  Age: 65 Year
  Sex: Female
  Weight: 70.3 kg

DRUGS (7)
  1. ARIMIDEX [Suspect]
     Indication: BREAST CANCER
     Route: 048
  2. PREVACID [Concomitant]
  3. PLAVIX [Concomitant]
  4. ALTACE [Concomitant]
  5. LEXAPRO [Concomitant]
  6. ASPIRIN [Concomitant]
  7. SPIRIVA [Concomitant]
     Route: 055

REACTIONS (2)
  - LUNG NEOPLASM MALIGNANT [None]
  - WEIGHT DECREASED [None]
